FAERS Safety Report 19483297 (Version 1)
Quarter: 2021Q3

REPORT INFORMATION
  Report Type: Other
  Country: TR (occurrence: TR)
  Receive Date: 20210701
  Receipt Date: 20210701
  Transmission Date: 20211014
  Serious: Yes (Death)
  Sender: FDA-Public Use
  Company Number: TR-ROCHE-2861824

PATIENT

DRUGS (1)
  1. TOCILIZUMAB. [Suspect]
     Active Substance: TOCILIZUMAB
     Indication: COVID-19
     Dosage: 8 MG/KG OF TOCILIZUMAB (MAX. PER DOSE 400 MG) WAS ADMINISTERED INTRAVENOUSLY IN 100 ML SALINE OVER 6
     Route: 042

REACTIONS (2)
  - Off label use [Unknown]
  - Pneumonia [Fatal]
